FAERS Safety Report 7833272-1 (Version None)
Quarter: 2011Q4

REPORT INFORMATION
  Report Type: 
  Country: None (occurrence: None)
  Receive Date: 20111024
  Receipt Date: 20111018
  Transmission Date: 20120403
  Serious: Yes (Disabling)
  Sender: FDA-Public Use
  Company Number: GB-PFIZER INC-2011251147

PATIENT
  Age: 54 Year
  Sex: Female

DRUGS (4)
  1. PROCYCLIDINE [Concomitant]
     Dosage: 5 MG, 3X/DAY
  2. MODECATE ^SANOFI WINTHROP^ [Concomitant]
     Dosage: 25 MG, 4 TIMES A WEEK
  3. RAMIPRIL [Suspect]
     Indication: HYPERTENSION
     Dosage: 2.5 MG, 1X/DAY
     Route: 048
     Dates: start: 20101211, end: 20110301
  4. RAMIPRIL [Suspect]
     Dosage: 5 MG, 1X/DAY
     Dates: start: 20110301, end: 20110425

REACTIONS (3)
  - PAIN IN EXTREMITY [None]
  - PARAESTHESIA [None]
  - HYPOAESTHESIA [None]
